FAERS Safety Report 9335928 (Version 1)
Quarter: 2013Q2

REPORT INFORMATION
  Report Type: Spontaneous
  Country: US (occurrence: US)
  Receive Date: 20130606
  Receipt Date: 20130606
  Transmission Date: 20140414
  Serious: No
  Sender: FDA-Public Use
  Company Number: US-AMGEN-USASP2013029605

PATIENT
  Age: 80 Year
  Sex: Female

DRUGS (5)
  1. PROLIA [Suspect]
     Indication: OSTEOPOROSIS POSTMENOPAUSAL
     Dosage: 60 MG, UNK
     Dates: start: 20130409
  2. MULTIVITAMIN                       /00097801/ [Concomitant]
  3. DIURETICS [Concomitant]
  4. COUMADIN                           /00014802/ [Concomitant]
  5. CALCIUM WITH VITAMIN D             /00944201/ [Concomitant]

REACTIONS (3)
  - Gingival infection [Not Recovered/Not Resolved]
  - Gingival erythema [Not Recovered/Not Resolved]
  - Rash pustular [Not Recovered/Not Resolved]
